FAERS Safety Report 19530480 (Version 1)
Quarter: 2021Q3

REPORT INFORMATION
  Report Type: Spontaneous
  Country: US (occurrence: US)
  Receive Date: 20210713
  Receipt Date: 20210713
  Transmission Date: 20211014
  Serious: No
  Sender: FDA-Public Use
  Company Number: US-GLAXOSMITHKLINE-USCH2021044678

PATIENT
  Age: 85 Year
  Sex: Female

DRUGS (1)
  1. VOLTAREN ARTHRITIS PAIN [Suspect]
     Active Substance: DICLOFENAC SODIUM
     Indication: ARTHRALGIA
     Dosage: UNK UNK, TID
     Dates: start: 20210620

REACTIONS (4)
  - Application site dryness [Unknown]
  - Drug ineffective [Unknown]
  - Off label use [Unknown]
  - Skin exfoliation [Unknown]
